FAERS Safety Report 10182801 (Version 1)
Quarter: 2014Q2

REPORT INFORMATION
  Report Type: Spontaneous
  Country: GB (occurrence: GB)
  Receive Date: 20140520
  Receipt Date: 20140520
  Transmission Date: 20141212
  Serious: Yes (Other)
  Sender: FDA-Public Use
  Company Number: GB-ACTAVIS-2014-09979

PATIENT
  Age: 27 Year
  Sex: Female
  Weight: 51 kg

DRUGS (2)
  1. CO-CODAMOL [Suspect]
     Indication: PRODUCT USED FOR UNKNOWN INDICATION
     Dosage: 30/500,  10 DF(TABLETS)
     Route: 048
     Dates: start: 20140423, end: 20140424
  2. SOLPADOL [Suspect]
     Indication: PRODUCT USED FOR UNKNOWN INDICATION
     Dosage: 4 DF (TABLETS)
     Route: 048
     Dates: start: 20140423, end: 20140424

REACTIONS (3)
  - Vomiting [Not Recovered/Not Resolved]
  - Overdose [Unknown]
  - Drug dependence [Not Recovered/Not Resolved]
